FAERS Safety Report 8465649-8 (Version None)
Quarter: 2012Q2

REPORT INFORMATION
  Report Type: 
  Country: None (occurrence: None)
  Receive Date: 20120619
  Receipt Date: 20120607
  Transmission Date: 20120825
  Serious: Yes (Death)
  Sender: FDA-Public Use
  Company Number: 2012-292

PATIENT
  Age: 54 Year
  Sex: Male

DRUGS (13)
  1. FAZACLO ODT [Suspect]
     Dosage: 700 MG, QD, ORAL ; 100 MG, QD, ORAL
     Route: 048
     Dates: start: 20050309, end: 20070514
  2. FAZACLO ODT [Suspect]
     Dosage: 700 MG, QD, ORAL ; 100 MG, QD, ORAL
     Route: 048
     Dates: start: 20120404, end: 20120410
  3. GLUCOPHAGE [Concomitant]
  4. VALIUM [Concomitant]
  5. FLOMAX [Concomitant]
  6. PRILOSEC [Concomitant]
  7. ASPIRIN [Concomitant]
  8. TOPAMAX [Concomitant]
  9. ZOCOR [Concomitant]
  10. JANUVIA [Concomitant]
  11. NORVASC [Concomitant]
  12. ZETIA [Concomitant]
  13. DUONEB [Concomitant]

REACTIONS (1)
  - RESPIRATORY FAILURE [None]
